FAERS Safety Report 13950218 (Version 5)
Quarter: 2018Q1

REPORT INFORMATION
  Report Type: Spontaneous
  Country: PL (occurrence: PL)
  Receive Date: 20170908
  Receipt Date: 20180220
  Transmission Date: 20180508
  Serious: Yes (Life-Threatening, Hospitalization, Disabling, Other)
  Sender: FDA-Public Use
  Company Number: PL-TEVA-803404ISR

PATIENT
  Age: 50 Year
  Sex: Female

DRUGS (22)
  1. SERTRALINE [Suspect]
     Active Substance: SERTRALINE HYDROCHLORIDE
     Indication: DEPRESSION
     Dosage: 50 MILLIGRAM DAILY; AT THE MORNING
     Route: 048
  2. ESCITALOPRAM [Suspect]
     Active Substance: ESCITALOPRAM OXALATE
     Indication: AFFECTIVE DISORDER
  3. CONCOR [Suspect]
     Active Substance: BISOPROLOL FUMARATE
     Indication: SUICIDE ATTEMPT
     Route: 065
  4. PERINDOPRIL [Suspect]
     Active Substance: PERINDOPRIL
     Indication: SUICIDE ATTEMPT
     Route: 048
  5. ATORVASTATIN [Suspect]
     Active Substance: ATORVASTATIN
     Indication: HYPERCHOLESTEROLAEMIA
     Dosage: AT BEDTIME.
     Route: 048
  6. TRAMADOL. [Suspect]
     Active Substance: TRAMADOL
     Indication: OSTEOARTHRITIS
  7. ZOLPIDEM [Suspect]
     Active Substance: ZOLPIDEM\ZOLPIDEM TARTRATE
     Indication: DEPRESSION
     Dosage: 10 MILLIGRAM DAILY; AT BEDTIME
     Route: 048
  8. DOXEPIN [Suspect]
     Active Substance: DOXEPIN
     Indication: DEPRESSED MOOD
  9. CLARITHROMYCIN. [Suspect]
     Active Substance: CLARITHROMYCIN
     Indication: TINNITUS
     Dosage: TWO, 10-DAY TREATMENT CYCLES; AT BEDTIME.
     Route: 048
  10. MELOXICAM. [Suspect]
     Active Substance: MELOXICAM
     Indication: ARTHRALGIA
     Dosage: TRAMADOL IN COMBINATION WITH MELOXICAM, AT BEDTIME.
     Route: 048
  11. MELOXICAM. [Suspect]
     Active Substance: MELOXICAM
     Indication: OSTEOARTHRITIS
  12. ESCITALOPRAM [Suspect]
     Active Substance: ESCITALOPRAM OXALATE
     Indication: DEPRESSION
     Dosage: DOCTOR SWITCHED THE PATIENT FROM SERTRALINE TO ESCITALOPRAM, BEFORE SLEEPING 10MG.
     Route: 048
  13. TRAMADOL. [Suspect]
     Active Substance: TRAMADOL
     Indication: ARTHRALGIA
     Dosage: TRAMADOL IN COMBINATION WITH MELOXICAM; AT BEDTIME.
     Route: 048
  14. TROSICAM [Suspect]
     Active Substance: MELOXICAM
     Indication: ARTHRALGIA
     Route: 065
  15. ESCITALOPRAM [Suspect]
     Active Substance: ESCITALOPRAM OXALATE
     Indication: INSOMNIA
  16. ATORIS [Suspect]
     Active Substance: ATORVASTATIN CALCIUM
     Indication: SUICIDE ATTEMPT
     Route: 065
  17. POLSEN [Suspect]
     Active Substance: ZOLPIDEM TARTRATE
     Indication: DEPRESSION
     Dosage: 10 MILLIGRAM DAILY; AT BED TIME
     Route: 065
  18. BISOPROLOL [Suspect]
     Active Substance: BISOPROLOL
     Indication: PRODUCT USED FOR UNKNOWN INDICATION
     Route: 048
  19. SERTRALINE [Suspect]
     Active Substance: SERTRALINE HYDROCHLORIDE
     Indication: DEPRESSED MOOD
  20. DOXEPIN [Suspect]
     Active Substance: DOXEPIN
     Indication: DEPRESSION
     Dosage: 25 MILLIGRAM DAILY; AT NIGHT
     Route: 048
  21. DOXEPIN [Suspect]
     Active Substance: DOXEPIN
     Indication: AFFECTIVE DISORDER
  22. ZOLPIDEM [Suspect]
     Active Substance: ZOLPIDEM\ZOLPIDEM TARTRATE
     Indication: DEPRESSED MOOD

REACTIONS (12)
  - Product use in unapproved indication [Unknown]
  - Tinnitus [Recovering/Resolving]
  - Affective disorder [Recovering/Resolving]
  - Intentional overdose [Unknown]
  - Condition aggravated [Unknown]
  - Loss of personal independence in daily activities [Recovered/Resolved]
  - Insomnia [Recovering/Resolving]
  - Suicide attempt [Recovered/Resolved]
  - Intentional product misuse [Recovering/Resolving]
  - Overdose [Recovered/Resolved]
  - Loss of consciousness [Recovered/Resolved]
  - Impaired work ability [Recovered/Resolved]
